FAERS Safety Report 9364548 (Version 1)
Quarter: 2013Q2

REPORT INFORMATION
  Report Type: Spontaneous
  Country: US (occurrence: US)
  Receive Date: 20130624
  Receipt Date: 20130624
  Transmission Date: 20140414
  Serious: Yes (Other)
  Sender: FDA-Public Use
  Company Number: US-PFIZER INC-2013187630

PATIENT
  Age: 62 Year
  Sex: Male
  Weight: 108 kg

DRUGS (3)
  1. LYRICA [Suspect]
     Indication: HYPOAESTHESIA
     Dosage: 75 MG, 3X/DAY
     Dates: start: 20130425, end: 20130524
  2. LYRICA [Suspect]
     Dosage: 150 MG, 3X/DAY
     Dates: start: 20130525
  3. PERCOCET [Suspect]
     Indication: PAIN
     Dosage: 10 MG, AS NEEDED

REACTIONS (8)
  - Dyspnoea [Unknown]
  - Blood cholesterol abnormal [Recovered/Resolved]
  - Thyroid disorder [Recovered/Resolved]
  - Poor quality sleep [Unknown]
  - Local swelling [Not Recovered/Not Resolved]
  - Weight increased [Unknown]
  - Drug ineffective [Unknown]
  - Intentional drug misuse [Unknown]
